FAERS Safety Report 8369831-X (Version None)
Quarter: 2012Q1

REPORT INFORMATION
  Report Type: 
  Country: None (occurrence: None)
  Receive Date: 20120323
  Receipt Date: 20110817
  Transmission Date: 20120608
  Serious: Yes (Hospitalization, Other)
  Sender: FDA-Public Use
  Company Number: 163-21880-11012133

PATIENT
  Age: 55 Year
  Sex: Female
  Weight: 100.2449 kg

DRUGS (17)
  1. LEVOTHYROXINE SODIUM [Concomitant]
  2. GABAPENTIN [Concomitant]
  3. SEROQUEL [Concomitant]
  4. HYDROCODONE BITARTRATE [Concomitant]
  5. DECADRON [Concomitant]
  6. VELCADE [Concomitant]
  7. ZOLPIDEM TARTRATE [Concomitant]
  8. ALTACE [Concomitant]
  9. FAMOTIDINE [Concomitant]
  10. REVLIMID [Suspect]
     Indication: MULTIPLE MYELOMA
     Dosage: 15 MG, DAILY FOR 21 DAYS OFF 7 DAYS, PO 15 MG, QD, PO 10 MG, QD, PO 5 MG, QD, PO
     Route: 048
     Dates: start: 20110128, end: 20110513
  11. REVLIMID [Suspect]
     Indication: MULTIPLE MYELOMA
     Dosage: 15 MG, DAILY FOR 21 DAYS OFF 7 DAYS, PO 15 MG, QD, PO 10 MG, QD, PO 5 MG, QD, PO
     Route: 048
     Dates: start: 20110513
  12. REVLIMID [Suspect]
     Indication: MULTIPLE MYELOMA
     Dosage: 15 MG, DAILY FOR 21 DAYS OFF 7 DAYS, PO 15 MG, QD, PO 10 MG, QD, PO 5 MG, QD, PO
     Route: 048
     Dates: start: 20110103, end: 20110117
  13. REVLIMID [Suspect]
     Indication: MULTIPLE MYELOMA
     Dosage: 15 MG, DAILY FOR 21 DAYS OFF 7 DAYS, PO 15 MG, QD, PO 10 MG, QD, PO 5 MG, QD, PO
     Route: 048
     Dates: start: 20101201
  14. SERTRALINE HCL (SERTRALINE HYDROCHLORIDE) [Concomitant]
  15. NORCO [Concomitant]
  16. FEMHRT (ANOVLAR) [Concomitant]
  17. LOMOTIL [Concomitant]

REACTIONS (3)
  - HAEMOGLOBIN DECREASED [None]
  - PANCYTOPENIA [None]
  - DEEP VEIN THROMBOSIS [None]
